FAERS Safety Report 15128611 (Version 2)
Quarter: 2018Q3

REPORT INFORMATION
  Report Type: Report from Study
  Country: None (occurrence: IT)
  Receive Date: 20180711
  Receipt Date: 20180720
  Transmission Date: 20181010
  Serious: Yes (Hospitalization)
  Sender: FDA-Public Use
  Company Number: IT-ABBVIE-18S-083-2411252-00

PATIENT
  Age: 74 Year
  Sex: Male

DRUGS (1)
  1. DUODOPA [Suspect]
     Active Substance: CARBIDOPA\LEVODOPA
     Indication: PARKINSON^S DISEASE
     Dosage: MD 1.3+3?CR 1.7?ED 1.2
     Route: 050
     Dates: start: 20180306, end: 20180717

REACTIONS (2)
  - Pneumonia aspiration [Unknown]
  - Tremor [Unknown]

NARRATIVE: CASE EVENT DATE: 20180703
